FAERS Safety Report 20240384 (Version 3)
Quarter: 2022Q1

REPORT INFORMATION
  Report Type: Spontaneous
  Country: US (occurrence: US)
  Receive Date: 20211228
  Receipt Date: 20220311
  Transmission Date: 20220423
  Serious: Yes (Other)
  Sender: FDA-Public Use
  Company Number: US-PFIZER INC-2020467362

PATIENT
  Age: 75 Year
  Sex: Male
  Weight: 106.59 kg

DRUGS (4)
  1. VYNDAMAX [Suspect]
     Active Substance: TAFAMIDIS
     Indication: Cardiac amyloidosis
     Dosage: 61 MG, 1X/DAY
     Route: 048
     Dates: start: 202001, end: 202011
  2. ELIQUIS [Concomitant]
     Active Substance: APIXABAN
     Indication: Blood disorder
     Dosage: 5 MG, 2X/DAY
     Route: 048
  3. SPIRONOLACTONE [Concomitant]
     Active Substance: SPIRONOLACTONE
     Indication: Fluid retention
     Dosage: 25 MG, 1X/DAY
     Route: 048
  4. FUROSEMIDE [Concomitant]
     Active Substance: FUROSEMIDE
     Indication: Fluid retention
     Dosage: 40 MG, 1X/DAY
     Route: 048

REACTIONS (29)
  - Choking [Unknown]
  - Cardiac flutter [Unknown]
  - Erectile dysfunction [Unknown]
  - Myalgia [Unknown]
  - Musculoskeletal stiffness [Unknown]
  - Back pain [Unknown]
  - Fatigue [Unknown]
  - Dyspnoea [Unknown]
  - Weight increased [Unknown]
  - Visual impairment [Unknown]
  - Hypoacusis [Unknown]
  - Chest pain [Unknown]
  - Chest discomfort [Unknown]
  - Peripheral swelling [Unknown]
  - Cough [Unknown]
  - Dysphagia [Unknown]
  - Joint stiffness [Unknown]
  - Arthralgia [Unknown]
  - Rash [Unknown]
  - Dizziness [Unknown]
  - Hypoaesthesia [Unknown]
  - Pain in extremity [Unknown]
  - Balance disorder [Unknown]
  - Libido decreased [Unknown]
  - Decreased interest [Unknown]
  - Depressed mood [Unknown]
  - Pollakiuria [Unknown]
  - Urinary incontinence [Unknown]
  - Dyspnoea exertional [Unknown]
